FAERS Safety Report 9683384 (Version 2)
Quarter: 2013Q4

REPORT INFORMATION
  Report Type: Spontaneous
  Country: US (occurrence: US)
  Receive Date: 20131112
  Receipt Date: 20131129
  Transmission Date: 20140711
  Serious: No
  Sender: FDA-Public Use
  Company Number: US-PFIZER INC-2013320875

PATIENT
  Sex: Female

DRUGS (2)
  1. LYRICA [Suspect]
     Indication: NERVE INJURY
     Dosage: 200 MG, 2X/DAY
     Dates: start: 2011
  2. OXYCONTIN [Suspect]
     Indication: PAIN
     Dosage: 50 MG, 2X/DAY
     Dates: start: 2010, end: 2012

REACTIONS (2)
  - Pain [Recovered/Resolved]
  - Drug ineffective [Unknown]
